FAERS Safety Report 18067827 (Version 2)
Quarter: 2021Q1

REPORT INFORMATION
  Report Type: Report from Study
  Country: US (occurrence: US)
  Receive Date: 20200725
  Receipt Date: 20210313
  Transmission Date: 20210419
  Serious: No
  Sender: FDA-Public Use
  Company Number: US-SHIRE-US202023910

PATIENT
  Age: 30 Year
  Sex: Female

DRUGS (2)
  1. VON WILLEBRAND FACTOR [Suspect]
     Active Substance: VON WILLEBRAND FACTOR HUMAN
     Indication: PROPHYLAXIS
     Dosage: 9040 INTERNATIONAL UNIT, Q2WEEKS
     Route: 042
  2. VON WILLEBRAND FACTOR [Suspect]
     Active Substance: VON WILLEBRAND FACTOR HUMAN
     Dosage: 8640 INTERNATIONAL UNIT
     Route: 042

REACTIONS (7)
  - Hypoaesthesia [Unknown]
  - Central venous catheter removal [Unknown]
  - Musculoskeletal discomfort [Unknown]
  - Pain [Unknown]
  - Limb injury [Unknown]
  - Fall [Not Recovered/Not Resolved]
  - Injury [Unknown]

NARRATIVE: CASE EVENT DATE: 20200722
